FAERS Safety Report 7511731 (Version 3)
Quarter: 2013Q1

REPORT INFORMATION
  Report Type: Report from Study
  Country: NZ (occurrence: NZ)
  Receive Date: 20100730
  Receipt Date: 20130121
  Transmission Date: 20140127
  Serious: Yes (Hospitalization, Other)
  Sender: FDA-Public Use
  Company Number: NZ-PURDUE-USA-2010-0045204

PATIENT
  Age: 52 Year
  Sex: Male
  Weight: 114.4 kg

DRUGS (13)
  1. BTDS PATCH [Suspect]
     Indication: DIABETIC NEUROPATHY
     Dosage: 20 MCG/HR, Q1H
     Dates: start: 20100713
  2. METFORMIN [Concomitant]
     Dosage: UNK
     Dates: start: 20100611
  3. PROTAPHANE [Concomitant]
     Dosage: UNK
     Dates: start: 201001
  4. NOVORAPID [Concomitant]
     Dosage: UNK
     Dates: start: 201001
  5. CILAZAPRIL [Concomitant]
     Dosage: UNK
     Dates: start: 20100601
  6. AMITRIPTYLINE [Concomitant]
     Dosage: UNK
     Dates: start: 20100329
  7. PARACETAMOL [Concomitant]
     Dosage: UNK
  8. ASPIRIN (E.C.) [Concomitant]
     Dosage: UNK
     Dates: start: 20100622
  9. GLYCERYL TRINITRATE [Concomitant]
     Dosage: UNK
     Dates: start: 20100622
  10. OMEPRAZOLE [Concomitant]
     Dosage: UNK
     Dates: start: 20100622
  11. FRUSEMIDE                          /00032601/ [Concomitant]
     Dosage: UNK
     Dates: start: 20100629
  12. METOPROLOL                         /00376902/ [Concomitant]
     Dosage: UNK
     Dates: start: 20100709
  13. SIMVASTATIN [Concomitant]
     Dosage: UNK
     Dates: start: 20100709

REACTIONS (2)
  - Local swelling [Recovered/Resolved]
  - Pain in extremity [Recovered/Resolved]
